FAERS Safety Report 8920238 (Version 2)
Quarter: 2013Q1

REPORT INFORMATION
  Report Type: Spontaneous
  Country: US (occurrence: US)
  Receive Date: 20121122
  Receipt Date: 20130311
  Transmission Date: 20140127
  Serious: Yes (Other)
  Sender: FDA-Public Use
  Company Number: US-ROCHE-789996

PATIENT
  Age: 48 None
  Sex: Male
  Weight: 97.61 kg

DRUGS (7)
  1. ACCUTANE [Suspect]
     Indication: ACNE CYSTIC
     Route: 065
     Dates: start: 1985, end: 1987
  2. ACCUTANE [Suspect]
     Route: 065
     Dates: start: 1988, end: 1989
  3. ACCUTANE [Suspect]
     Route: 065
     Dates: start: 19890421, end: 19891021
  4. ACCUTANE [Suspect]
     Route: 065
     Dates: start: 19910214, end: 19910630
  5. ACCUTANE [Suspect]
     Route: 065
     Dates: start: 1995, end: 1996
  6. ACCUTANE [Suspect]
     Route: 065
     Dates: start: 19970827, end: 19971127
  7. SOTRET [Suspect]
     Indication: ACNE CYSTIC
     Route: 065
     Dates: start: 20060105, end: 200602

REACTIONS (12)
  - Colitis ulcerative [Unknown]
  - Inflammatory bowel disease [Unknown]
  - Depression [Unknown]
  - Emotional distress [Unknown]
  - Crohn^s disease [Unknown]
  - Suicidal ideation [Unknown]
  - Mental disorder [Unknown]
  - Intestinal haemorrhage [Unknown]
  - Intestinal obstruction [Unknown]
  - Irritable bowel syndrome [Unknown]
  - Lip dry [Unknown]
  - Chapped lips [Unknown]
